FAERS Safety Report 10711065 (Version 2)
Quarter: 2015Q1

REPORT INFORMATION
  Report Type: Spontaneous
  Country: CH (occurrence: CH)
  Receive Date: 20150114
  Receipt Date: 20150218
  Transmission Date: 20150721
  Serious: Yes (Life-Threatening, Hospitalization)
  Sender: FDA-Public Use
  Company Number: CH-TEVA-533547ISR

PATIENT
  Age: 65 Year
  Sex: Female
  Weight: 81 kg

DRUGS (7)
  1. AZAREK [Suspect]
     Active Substance: AZATHIOPRINE
     Dosage: 150 MILLIGRAM DAILY;
     Route: 048
     Dates: start: 201411, end: 20141205
  2. COSAAR [Concomitant]
     Active Substance: LOSARTAN POTASSIUM
     Route: 048
  3. AZAREK [Suspect]
     Active Substance: AZATHIOPRINE
     Indication: MYASTHENIA GRAVIS
     Dosage: 50 MILLIGRAM DAILY;
     Route: 048
     Dates: start: 20141105, end: 201411
  4. SPIRICORT [Concomitant]
     Active Substance: PREDNISOLONE
     Indication: MYASTHENIA GRAVIS
     Route: 048
     Dates: start: 20141105
  5. AZITHROMYCIN MEPHA [Suspect]
     Active Substance: AZITHROMYCIN ANHYDROUS
     Indication: UPPER RESPIRATORY TRACT INFECTION
     Dosage: 1000 MILLIGRAM DAILY;
     Route: 048
     Dates: start: 20141203, end: 20141205
  6. MESTINON [Concomitant]
     Active Substance: PYRIDOSTIGMINE BROMIDE
     Indication: MYASTHENIA GRAVIS
     Route: 048
     Dates: start: 20141101, end: 20141218
  7. CALCIMAGON D3 [Concomitant]
     Active Substance: CALCIUM\CHOLECALCIFEROL
     Route: 048
     Dates: start: 20141105

REACTIONS (5)
  - Pancreatic disorder [Recovering/Resolving]
  - Liver disorder [Recovering/Resolving]
  - Off label use [Recovered/Resolved]
  - Systemic inflammatory response syndrome [Recovering/Resolving]
  - Myasthenia gravis crisis [Recovering/Resolving]

NARRATIVE: CASE EVENT DATE: 20141105
